FAERS Safety Report 11292683 (Version 1)
Quarter: 2015Q2

REPORT INFORMATION
  Report Type: Spontaneous
  Country: US (occurrence: None)
  Receive Date: 20150623
  Receipt Date: 20150623
  Transmission Date: 20150821
  Serious: Yes (Other)
  Sender: FDA-Public Use
  Company Number: RB-74127-2015

PATIENT
  Age: 46 Year
  Sex: Female

DRUGS (2)
  1. AZITHROMYCIN [Suspect]
     Active Substance: AZITHROMYCIN ANHYDROUS
     Indication: PRODUCT USED FOR UNKNOWN INDICATION
  2. DEXTROMETHORPHAN/GUAIFENESIN 1200 MG (RB (RECKITT BENCKISER)) [Suspect]
     Active Substance: DEXTROMETHORPHAN\GUAIFENESIN
     Indication: PRODUCT USED FOR UNKNOWN INDICATION
     Dosage: (1200 MG TOTAL, TOOK 1 TABLET (TOTAL) AT 9P.M ON 19-FEB-2015. UNKNOWN)
     Dates: start: 20150219

REACTIONS (4)
  - Muscle spasms [None]
  - Pain in extremity [None]
  - Hyperaesthesia [None]
  - Dyskinesia [None]

NARRATIVE: CASE EVENT DATE: 20150219
